FAERS Safety Report 6224298-2 (Version None)
Quarter: 2009Q2

REPORT INFORMATION
  Report Type: 
  Country: None (occurrence: None)
  Receive Date: 20090612
  Receipt Date: 20090316
  Transmission Date: 20091009
  Serious: No
  Sender: FDA-Public Use
  Company Number: US-ABBOTT-09P-163-0562753-00

PATIENT
  Sex: Female
  Weight: 149.82 kg

DRUGS (2)
  1. HUMIRA [Suspect]
     Indication: CROHN'S DISEASE
     Dates: start: 20090224, end: 20090224
  2. HUMIRA [Suspect]
     Dosage: DAY 15
     Dates: start: 20090312

REACTIONS (5)
  - ABDOMINAL PAIN [None]
  - ASTHENIA [None]
  - FAECAL VOLUME INCREASED [None]
  - FATIGUE [None]
  - MUSCLE SPASMS [None]
